FAERS Safety Report 5711840-0 (Version None)
Quarter: 2008Q2

REPORT INFORMATION
  Report Type: 
  Country: None (occurrence: None)
  Receive Date: 20080416
  Receipt Date: 20080402
  Transmission Date: 20081010
  Serious: Yes (Other)
  Sender: FDA-Public Use
  Company Number: 2008US001042

PATIENT
  Age: 19 Year
  Sex: Female

DRUGS (17)
  1. AMBISOME [Suspect]
     Indication: ASPERGILLOSIS
     Dosage: 50 MG, UID/QD, IV NOS
     Route: 042
     Dates: start: 20071101, end: 20071112
  2. URSO 250 [Concomitant]
  3. GASTER D [Concomitant]
  4. NORVASC [Concomitant]
  5. MUCODYNE (CARBOCISTEINE) [Concomitant]
  6. POTASSIUM CHLORIDE [Concomitant]
  7. ACYCLOVIR [Concomitant]
  8. NEUPOGEN [Concomitant]
  9. MAGNESIUM SULFATE [Concomitant]
  10. SANDIMMUNE [Concomitant]
  11. NOVOLIN R [Concomitant]
  12. MEROPEN (MEROPENEM) [Concomitant]
  13. LASIX [Concomitant]
  14. PREDONINE (PREDNISOLONE SODIUM SUCCINATE) [Concomitant]
  15. VANCOMYCIN HYDROCHLORIDE [Concomitant]
  16. VFEND [Concomitant]
  17. ALPROSTADIL [Concomitant]

REACTIONS (2)
  - BLOOD BILIRUBIN INCREASED [None]
  - WEIGHT INCREASED [None]
